FAERS Safety Report 8206744-8 (Version None)
Quarter: 2012Q1

REPORT INFORMATION
  Report Type: 
  Country: None (occurrence: None)
  Receive Date: 20120314
  Receipt Date: 20100128
  Transmission Date: 20120608
  Serious: No
  Sender: FDA-Public Use
  Company Number: 2010BI003388

PATIENT
  Sex: Male

DRUGS (1)
  1. TYSABRI [Suspect]
     Indication: MULTIPLE SCLEROSIS
     Route: 042
     Dates: start: 20081007

REACTIONS (7)
  - MOBILITY DECREASED [None]
  - GAIT DISTURBANCE [None]
  - MEMORY IMPAIRMENT [None]
  - DRUG EFFECT DECREASED [None]
  - FATIGUE [None]
  - SELF ESTEEM DECREASED [None]
  - HEADACHE [None]
